FAERS Safety Report 21397073 (Version 2)
Quarter: 2022Q4

REPORT INFORMATION
  Report Type: Spontaneous
  Country: FR (occurrence: FR)
  Receive Date: 20220930
  Receipt Date: 20221204
  Transmission Date: 20230113
  Serious: Yes (Death, Hospitalization)
  Sender: FDA-Public Use
  Company Number: FR-DECIPHERA PHARMACEUTICALS LLC-2022FR000801

PATIENT
  Sex: Male
  Weight: 73 kg

DRUGS (1)
  1. QINLOCK [Suspect]
     Active Substance: RIPRETINIB
     Indication: Gastrointestinal stromal tumour
     Dosage: 150 MILLIGRAM, BID

REACTIONS (5)
  - Cardiac arrest [Fatal]
  - Malignant neoplasm progression [Unknown]
  - Abdominal pain [Unknown]
  - Diarrhoea [Unknown]
  - Extra dose administered [Unknown]
